FAERS Safety Report 17408028 (Version 1)
Quarter: 2020Q1

REPORT INFORMATION
  Report Type: Report from Study
  Country: BR (occurrence: BR)
  Receive Date: 20200212
  Receipt Date: 20200212
  Transmission Date: 20200409
  Serious: Yes (Other)
  Sender: FDA-Public Use
  Company Number: NVSC2020BR034779

PATIENT
  Sex: Female

DRUGS (1)
  1. DONEPEZIL. [Suspect]
     Active Substance: DONEPEZIL
     Indication: PRODUCT USED FOR UNKNOWN INDICATION
     Dosage: UNK
     Route: 065

REACTIONS (2)
  - Abdominal discomfort [Recovered/Resolved]
  - Dementia [Not Recovered/Not Resolved]
